FAERS Safety Report 20076766 (Version 1)
Quarter: 2021Q4

REPORT INFORMATION
  Report Type: Report from Study
  Country: AR (occurrence: AR)
  Receive Date: 20211116
  Receipt Date: 20211116
  Transmission Date: 20220303
  Serious: Yes (Life-Threatening, Other)
  Sender: FDA-Public Use
  Company Number: AR-TAKEDA-2021TUS071616

PATIENT
  Age: 0 Day
  Sex: Female
  Weight: 2 kg

DRUGS (1)
  1. VELAGLUCERASE ALFA [Suspect]
     Active Substance: VELAGLUCERASE ALFA
     Indication: Product used for unknown indication
     Route: 065

REACTIONS (2)
  - Adverse event [Recovering/Resolving]
  - Foetal anaemia [Recovering/Resolving]

NARRATIVE: CASE EVENT DATE: 20211111
